FAERS Safety Report 12465753 (Version 1)
Quarter: 2016Q2

REPORT INFORMATION
  Report Type: Spontaneous
  Country: US (occurrence: US)
  Receive Date: 20160614
  Receipt Date: 20160614
  Transmission Date: 20160815
  Serious: No
  Sender: FDA-Public Use
  Company Number: US-TAKEDA-2016TUS009602

PATIENT
  Sex: Female

DRUGS (2)
  1. PREVACID [Suspect]
     Active Substance: LANSOPRAZOLE
     Indication: PRODUCT USED FOR UNKNOWN INDICATION
     Dosage: UNK
     Route: 065
  2. OMEPRAZOLE. [Suspect]
     Active Substance: OMEPRAZOLE
     Indication: GASTROOESOPHAGEAL REFLUX DISEASE
     Dosage: 20 MG, BID
     Route: 048

REACTIONS (7)
  - Eructation [Recovered/Resolved]
  - Pruritus [Recovered/Resolved]
  - Contusion [Recovered/Resolved]
  - Urticaria [Recovered/Resolved]
  - Rash [Recovered/Resolved]
  - Product physical issue [Recovered/Resolved]
  - Back pain [Recovered/Resolved]
